FAERS Safety Report 20575491 (Version 3)
Quarter: 2023Q1

REPORT INFORMATION
  Report Type: Spontaneous
  Country: US (occurrence: US)
  Receive Date: 20220310
  Receipt Date: 20230222
  Transmission Date: 20230417
  Serious: Yes (Other)
  Sender: FDA-Public Use
  Company Number: US-GILEAD-2022-0572972

PATIENT
  Sex: Male
  Weight: 122.92 kg

DRUGS (14)
  1. TRUVADA [Suspect]
     Active Substance: EMTRICITABINE\TENOFOVIR DISOPROXIL FUMARATE
     Indication: HIV infection
     Dosage: UNK
     Route: 048
     Dates: start: 2011
  2. TRUVADA [Suspect]
     Active Substance: EMTRICITABINE\TENOFOVIR DISOPROXIL FUMARATE
     Dosage: UNK
     Route: 048
     Dates: start: 200705, end: 202010
  3. BIKTARVY [Concomitant]
     Active Substance: BICTEGRAVIR SODIUM\EMTRICITABINE\TENOFOVIR ALAFENAMIDE FUMARATE
  4. EMTRIVA [Concomitant]
     Active Substance: EMTRICITABINE
  5. EPIVIR [Concomitant]
     Active Substance: LAMIVUDINE
  6. ISENTRESS [Concomitant]
     Active Substance: RALTEGRAVIR POTASSIUM
  7. JULUCA [Concomitant]
     Active Substance: DOLUTEGRAVIR SODIUM\RILPIVIRINE HYDROCHLORIDE
  8. KALETRA [Concomitant]
     Active Substance: LOPINAVIR\RITONAVIR
  9. NORVIR [Concomitant]
     Active Substance: RITONAVIR
  10. REYATAZ [Concomitant]
     Active Substance: ATAZANAVIR SULFATE
  11. VIRACEPT [Concomitant]
     Active Substance: NELFINAVIR MESYLATE
  12. ZERIT [Concomitant]
     Active Substance: STAVUDINE
  13. VASCEPA [Concomitant]
     Active Substance: ICOSAPENT ETHYL
  14. NOVOLOG [Concomitant]
     Active Substance: INSULIN ASPART

REACTIONS (15)
  - Renal impairment [Not Recovered/Not Resolved]
  - Acute kidney injury [Not Recovered/Not Resolved]
  - Chronic kidney disease [Not Recovered/Not Resolved]
  - Nephrolithiasis [Unknown]
  - Dialysis [Unknown]
  - Renal transplant [Unknown]
  - Pain [Not Recovered/Not Resolved]
  - Emotional distress [Not Recovered/Not Resolved]
  - Anxiety [Not Recovered/Not Resolved]
  - Anhedonia [Not Recovered/Not Resolved]
  - Asthenia [Unknown]
  - Fatigue [Unknown]
  - Anaemia [Not Recovered/Not Resolved]
  - Glomerular filtration rate decreased [Unknown]
  - Pollakiuria [Unknown]

NARRATIVE: CASE EVENT DATE: 20090101
